FAERS Safety Report 8891877 (Version 1)
Quarter: 2012Q4

REPORT INFORMATION
  Report Type: 
  Country: US (occurrence: US)
  Receive Date: 20121107
  Receipt Date: 20121107
  Transmission Date: 20130627
  Serious: No
  Sender: FDA-Public Use
  Company Number: US-AMGEN-USASP2011058164

PATIENT
  Age: 53 Year
  Sex: Female
  Weight: 375 kg

DRUGS (13)
  1. ENBREL [Suspect]
     Indication: PRODUCT USED FOR UNKNOWN INDICATION
     Dosage: 50 mg, UNK
  2. SINGULAIR [Concomitant]
     Dosage: 10 mg, UNK
  3. PREDNISONE [Concomitant]
     Dosage: 5 mg, UNK
  4. NASONEX AQUEOUS [Concomitant]
     Dosage: 0.50 mg, UNK
     Route: 001
  5. ARAVA [Concomitant]
     Dosage: 10 mg, UNK
  6. IBUPROFEN [Concomitant]
     Dosage: 800 mg, UNK
  7. SYMBICORT [Concomitant]
     Dosage: 160 UNK, UNK
  8. HYDROCODONE HYDROCHLORIDE W/PARACETAMOL [Concomitant]
     Dosage: UNK
  9. XOPENEX HFA [Concomitant]
  10. IRON [Concomitant]
     Dosage: 50 mg, UNK
  11. CALCIUM +D                         /00188401/ [Concomitant]
     Dosage: 600 mg, UNK
  12. CRANBERRY                          /01512301/ [Concomitant]
     Dosage: 1000 mg, UNK
  13. GLUCOSAMINE CHONDROITIN            /01430901/ [Concomitant]

REACTIONS (1)
  - Injection site urticaria [Unknown]
